FAERS Safety Report 6183096-9 (Version None)
Quarter: 2009Q2

REPORT INFORMATION
  Report Type: 
  Country: None (occurrence: None)
  Receive Date: 20090507
  Receipt Date: 20090428
  Transmission Date: 20091009
  Serious: Yes (Hospitalization, Other)
  Sender: FDA-Public Use
  Company Number: US-ABBOTT-09P-163-0570349-00

PATIENT
  Age: 11 Year
  Sex: Male

DRUGS (20)
  1. CYCLOSPORINE [Suspect]
     Indication: SERUM SICKNESS
     Route: 048
  2. CYCLOSPORINE [Suspect]
     Indication: PROPHYLAXIS
  3. ANTI-THYMOCYTE GLOBULIN NOS [Concomitant]
     Indication: PROPHYLAXIS
     Dosage: NOT REPORTED
  4. ANTI-THYMOCYTE GLOBULIN NOS [Concomitant]
     Indication: SERUM SICKNESS
  5. GRANULOCYTE MACROPHAGE COLONY STIM FACTOR [Concomitant]
     Indication: SERUM SICKNESS
     Dosage: NOT REPORTED
  6. GRANULOCYTE MACROPHAGE COLONY STIM FACTOR [Concomitant]
     Indication: PROPHYLAXIS
  7. SOLU-MEDROL [Concomitant]
     Indication: PROPHYLAXIS
     Route: 042
  8. SOLU-MEDROL [Concomitant]
     Indication: SERUM SICKNESS
  9. VANCOMYCIN HCL [Concomitant]
     Indication: PYREXIA
     Dosage: NOT REPORTED
  10. CEFTAZIDIME [Concomitant]
     Indication: PYREXIA
     Dosage: NOT REPORTED
  11. FLUCONAZOLE [Concomitant]
     Indication: PYREXIA
     Dosage: NOT REPORTED
  12. AMPHOTERICIN B [Concomitant]
     Indication: PYREXIA
     Dosage: NOT REPORTED
  13. AMPHOTERICIN B [Concomitant]
     Indication: PANCYTOPENIA
  14. AMPHOTERICIN B [Concomitant]
     Indication: INFECTION SUSCEPTIBILITY INCREASED
  15. LORAZEPAM [Concomitant]
     Indication: CONVULSION
     Dosage: NOT REPORTED
  16. NICARDIPINE HYDROCHLORIDE [Concomitant]
     Indication: HYPERTENSION
     Dosage: DRIP
  17. MAGNESIUM SULFATE [Concomitant]
     Indication: HYPOMAGNESAEMIA
     Dosage: INFUSION
  18. LEVETIRACETAM [Concomitant]
     Indication: CONVULSION PROPHYLAXIS
     Dosage: NOT REPORTED
  19. AMLODIPINE [Concomitant]
     Indication: HYPERTENSION
     Dosage: NOT REPORTED
  20. FOSINOPRIL SODIUM [Concomitant]
     Indication: HYPERTENSION
     Dosage: NOT REPORTED

REACTIONS (1)
  - REVERSIBLE POSTERIOR LEUKOENCEPHALOPATHY SYNDROME [None]
